FAERS Safety Report 6937112-4 (Version None)
Quarter: 2010Q3

REPORT INFORMATION
  Report Type: 
  Country: None (occurrence: None)
  Receive Date: 20100823
  Receipt Date: 20100809
  Transmission Date: 20110219
  Serious: Yes (Hospitalization)
  Sender: FDA-Public Use
  Company Number: GB-MYLANLABS-2010S1014335

PATIENT
  Age: 39 Year
  Sex: Male

DRUGS (3)
  1. AMISULPRIDE [Suspect]
     Indication: INTENTIONAL OVERDOSE
     Route: 048
  2. MIRTAZAPINE [Suspect]
     Indication: INTENTIONAL OVERDOSE
     Route: 048
  3. ZOPICLONE [Suspect]
     Indication: INTENTIONAL OVERDOSE
     Route: 048

REACTIONS (3)
  - ELECTROCARDIOGRAM QT PROLONGED [None]
  - HYPOTENSION [None]
  - OVERDOSE [None]
